FAERS Safety Report 5751011-5 (Version None)
Quarter: 2008Q2

REPORT INFORMATION
  Report Type: 
  Country: None (occurrence: None)
  Receive Date: 20080528
  Receipt Date: 20080520
  Transmission Date: 20081010
  Serious: Yes (Life-Threatening)
  Sender: FDA-Public Use
  Company Number: GB-BAYER-200811326BNE

PATIENT
  Age: 41 Year
  Sex: Female
  Weight: 47 kg

DRUGS (2)
  1. CIPROFLOXACIN HCL [Suspect]
     Indication: GASTROENTERITIS
     Dosage: AS USED: 250 MG
     Route: 048
     Dates: start: 20080430, end: 20080430
  2. ALVERINE [Suspect]
     Indication: ABDOMINAL PAIN
     Route: 048
     Dates: start: 20080424, end: 20080430

REACTIONS (7)
  - AMNESIA [None]
  - CONFUSIONAL STATE [None]
  - DYSPHAGIA [None]
  - LOSS OF CONSCIOUSNESS [None]
  - MUSCULAR WEAKNESS [None]
  - SPEECH DISORDER [None]
  - TACHYCARDIA [None]
